FAERS Safety Report 9803176 (Version 5)
Quarter: 2014Q2

REPORT INFORMATION
  Report Type: Report from Study
  Country: DK (occurrence: DK)
  Receive Date: 20140108
  Receipt Date: 20140528
  Transmission Date: 20141212
  Serious: Yes (Hospitalization)
  Sender: FDA-Public Use
  Company Number: DK-JNJFOC-20140101181

PATIENT
  Age: 35 Year
  Sex: Female
  Weight: 62.8 kg

DRUGS (13)
  1. REMICADE [Suspect]
     Indication: COLITIS ULCERATIVE
     Route: 042
     Dates: start: 20100128, end: 20100128
  2. REMICADE [Suspect]
     Indication: COLITIS ULCERATIVE
     Route: 042
     Dates: start: 20091020
  3. REMICADE [Suspect]
     Indication: COLITIS ULCERATIVE
     Route: 042
     Dates: start: 20091103
  4. REMICADE [Suspect]
     Indication: COLITIS ULCERATIVE
     Route: 042
     Dates: start: 20091126
  5. PENTASA [Concomitant]
     Indication: COLITIS ULCERATIVE
     Route: 048
     Dates: start: 20060101
  6. METHOTREXATE [Concomitant]
     Indication: COLITIS ULCERATIVE
     Dosage: 3 YEARS 8 MONTHS
     Route: 048
     Dates: start: 20100104
  7. METHOTREXATE [Concomitant]
     Indication: COLITIS ULCERATIVE
     Route: 048
     Dates: start: 20100303
  8. FOLIC ACID [Concomitant]
     Route: 048
     Dates: start: 201003
  9. FOLIC ACID [Concomitant]
     Route: 048
     Dates: start: 20100104
  10. PREDNISOLONE [Concomitant]
     Dosage: SHORT COURSES
     Route: 065
     Dates: start: 2010
  11. PREDNISOLONE [Concomitant]
     Dosage: SHORT COURSES
     Route: 065
     Dates: start: 2013
  12. PREDNISOLONE [Concomitant]
     Dosage: SHORT COURSES, FOUR COURSES OF THREE MONTHS SINCE 2006
     Route: 065
     Dates: start: 2006
  13. AZATHIOPRINE [Concomitant]
     Indication: COLITIS ULCERATIVE
     Dosage: 2 MONTHS
     Route: 048
     Dates: start: 20090610, end: 20090807

REACTIONS (1)
  - Basal cell carcinoma [Recovered/Resolved]
